FAERS Safety Report 4864646-9 (Version None)
Quarter: 2005Q4

REPORT INFORMATION
  Report Type: 
  Country: None (occurrence: None)
  Receive Date: 20051201
  Receipt Date: 20050704
  Transmission Date: 20060501
  Serious: No
  Sender: FDA-Public Use
  Company Number: 2005PV000249

PATIENT
  Age: 84 Year
  Sex: Male
  Weight: 73.9363 kg

DRUGS (15)
  1. BYETTA [Suspect]
     Indication: DIABETES MELLITUS NON-INSULIN-DEPENDENT
     Dosage: 5 MCG; BID; SC
     Route: 058
     Dates: start: 20050630
  2. LUMIGAN [Concomitant]
  3. ACIPHEX [Concomitant]
  4. FLOMAX [Concomitant]
  5. AMITRIPTYLINE HCL [Concomitant]
  6. LOVASTATIN [Concomitant]
  7. EZETIMIBE [Concomitant]
  8. PLAVIX [Concomitant]
  9. PROPRANOLOL [Concomitant]
  10. OLMESARTAN MEDOXOMIL [Concomitant]
  11. GLIPIZIDE [Concomitant]
  12. BENAZEPRIL HCL [Concomitant]
  13. HYDRALAZINE [Concomitant]
  14. HYDROCHLOROTHIAZIDE [Concomitant]
  15. HUMULIN 70/30 [Concomitant]

REACTIONS (1)
  - BLOOD GLUCOSE INCREASED [None]
